FAERS Safety Report 8072827-9 (Version None)
Quarter: 2012Q1

REPORT INFORMATION
  Report Type: 
  Country: None (occurrence: None)
  Receive Date: 20120126
  Receipt Date: 20120120
  Transmission Date: 20120608
  Serious: Yes (Other)
  Sender: FDA-Public Use
  Company Number: US-B.I. PHARMACEUTICALS,INC./RIDGEFIELD-2010-BP-13470BP

PATIENT
  Sex: Female

DRUGS (7)
  1. LEVOTHYROXINE SODIUM [Concomitant]
     Indication: HYPOTHYROIDISM
     Dosage: 75 MCG
     Route: 048
  2. COMBIVENT [Suspect]
     Indication: EMPHYSEMA
  3. THEOPHYLLINE [Concomitant]
     Indication: EMPHYSEMA
     Dosage: 200 MG
     Route: 055
  4. FLECAINIDE ACETATE [Concomitant]
     Indication: ATRIAL FIBRILLATION
     Dosage: 200 MG
     Route: 048
  5. ASPIRIN [Concomitant]
     Indication: PROPHYLAXIS
     Dosage: 81 MCG
     Route: 048
  6. FORADIL [Concomitant]
     Indication: EMPHYSEMA
     Route: 055
  7. COMBIVENT [Suspect]
     Indication: CHRONIC OBSTRUCTIVE PULMONARY DISEASE
     Dosage: 2 PUF
     Route: 055
     Dates: start: 20050101

REACTIONS (7)
  - BRONCHOSPASM PARADOXICAL [None]
  - CYANOSIS [None]
  - NASOPHARYNGITIS [None]
  - DYSPHAGIA [None]
  - PHARYNGEAL OEDEMA [None]
  - DYSPNOEA [None]
  - BRONCHOSPASM [None]
